FAERS Safety Report 7087041-3 (Version None)
Quarter: 2010Q4

REPORT INFORMATION
  Report Type: 
  Country: None (occurrence: None)
  Receive Date: 20101106
  Receipt Date: 20101012
  Transmission Date: 20110411
  Serious: No
  Sender: FDA-Public Use
  Company Number: US-WYE-H17573710

PATIENT
  Sex: Female
  Weight: 66.28 kg

DRUGS (7)
  1. PREMARIN [Suspect]
     Indication: HORMONE REPLACEMENT THERAPY
     Route: 048
     Dates: start: 19840101, end: 20080101
  2. PREMARIN [Suspect]
     Indication: ARTIFICIAL MENOPAUSE
     Route: 048
     Dates: start: 20080101, end: 20100101
  3. PREMARIN [Suspect]
     Route: 048
     Dates: start: 20100101
  4. CALCIUM [Concomitant]
  5. SUDAFED 12 HOUR [Concomitant]
  6. METOPROLOL [Concomitant]
  7. FEXOFENADINE HCL [Concomitant]

REACTIONS (2)
  - PRODUCT QUALITY ISSUE [None]
  - URETHRITIS [None]
